FAERS Safety Report 5944724-3 (Version None)
Quarter: 2008Q4

REPORT INFORMATION
  Report Type: 
  Country: None (occurrence: None)
  Receive Date: 20081107
  Receipt Date: 20081028
  Transmission Date: 20090506
  Serious: Yes (Death, Hospitalization)
  Sender: FDA-Public Use
  Company Number: FR-ROCHE-594219

PATIENT
  Sex: Male
  Weight: 74 kg

DRUGS (9)
  1. MYCOPHENOLATE MOFETIL [Suspect]
     Indication: LIVER TRANSPLANT
     Dosage: FREQUENC: X 2
     Route: 048
     Dates: start: 20080910
  2. PROGRAF [Concomitant]
  3. ASPEGIC 325 [Concomitant]
     Dates: start: 20080915
  4. COZAAR [Concomitant]
     Dates: start: 20080915
  5. MOPRAL [Concomitant]
     Dates: start: 20080911
  6. ROVALCYTE [Concomitant]
     Dates: start: 20080911
  7. TENORMIN [Concomitant]
     Dates: start: 20080901
  8. PRAVASTATIN [Concomitant]
     Dates: start: 20080901
  9. INSULINE [Concomitant]
     Dates: start: 20080919

REACTIONS (2)
  - MULTI-ORGAN FAILURE [None]
  - SEPSIS [None]
